FAERS Safety Report 8916505 (Version 2)
Quarter: 2012Q4

REPORT INFORMATION
  Report Type: 
  Country: US (occurrence: US)
  Receive Date: 20121120
  Receipt Date: 20121204
  Transmission Date: 20130627
  Serious: No
  Sender: FDA-Public Use
  Company Number: US-009507513-1211USA006876

PATIENT
  Sex: Female

DRUGS (1)
  1. AZASITE [Suspect]
     Indication: EYE INFECTION
     Dosage: UNK, bid
     Route: 031
     Dates: start: 2012

REACTIONS (4)
  - Product packaging quantity issue [Unknown]
  - Medication error [Unknown]
  - No adverse event [Unknown]
  - Accidental exposure to product [Unknown]
